FAERS Safety Report 23179729 (Version 1)
Quarter: 2023Q4

REPORT INFORMATION
  Report Type: Report from Study
  Country: US (occurrence: US)
  Receive Date: 20231114
  Receipt Date: 20231114
  Transmission Date: 20240109
  Serious: Yes (Other)
  Sender: FDA-Public Use
  Company Number: US-002147023-NVSC2023US238751

PATIENT
  Sex: Male
  Weight: 53.52 kg

DRUGS (2)
  1. COSENTYX [Suspect]
     Active Substance: SECUKINUMAB
     Indication: Psoriasis
     Dosage: 300 MG
     Route: 065
  2. COSENTYX [Suspect]
     Active Substance: SECUKINUMAB
     Indication: Psoriatic arthropathy

REACTIONS (14)
  - Psoriatic arthropathy [Unknown]
  - Musculoskeletal stiffness [Unknown]
  - Pain in extremity [Unknown]
  - Gait disturbance [Unknown]
  - Arthralgia [Unknown]
  - Osteoarthritis [Unknown]
  - Guttate psoriasis [Unknown]
  - Skin lesion [Unknown]
  - Nail disorder [Unknown]
  - Nail psoriasis [Unknown]
  - Fatigue [Unknown]
  - Malaise [Unknown]
  - Product use issue [Unknown]
  - Therapeutic product effect incomplete [Unknown]
